FAERS Safety Report 22055427 (Version 3)
Quarter: 2023Q2

REPORT INFORMATION
  Report Type: Spontaneous
  Country: US (occurrence: US)
  Receive Date: 20230302
  Receipt Date: 20230525
  Transmission Date: 20230722
  Serious: Yes (Hospitalization, Other)
  Sender: FDA-Public Use
  Company Number: US-PARI RESPIRATORY EQUIPMENT, INC.-2023PAR00008

PATIENT
  Sex: Male
  Weight: 48.98 kg

DRUGS (22)
  1. KITABIS PAK [Suspect]
     Active Substance: TOBRAMYCIN
     Indication: Bacterial disease carrier
     Dosage: 300 MG, 2X/DAY FOR 28 DAYS ON AND 28 DAYS OFF
  2. KITABIS PAK [Suspect]
     Active Substance: TOBRAMYCIN
     Indication: Ill-defined disorder
  3. UNSPECIFIED INGREDIENT [Concomitant]
     Active Substance: UNSPECIFIED INGREDIENT
  4. LEVETIRACETAM [Concomitant]
     Active Substance: LEVETIRACETAM
     Dosage: UNK
     Dates: end: 2023
  5. LEVETIRACETAM [Concomitant]
     Active Substance: LEVETIRACETAM
     Dosage: 10 ML (1000 MG TOTAL), 2X/DAY
     Route: 048
     Dates: start: 2023
  6. ALBUTEROL [Concomitant]
     Active Substance: ALBUTEROL
     Dosage: 0.5 ML (2.5 MG TOTAL) BY NEBULIZATION, EVERY 4 HOURS
  7. ASCORBIC ACID [Concomitant]
     Active Substance: ASCORBIC ACID
     Dosage: 1 TABLET (100 MG), DAILY
     Route: 048
  8. BACLOFEN [Concomitant]
     Active Substance: BACLOFEN
     Dosage: 10 MG, 2X/DAY
     Route: 048
  9. CHOLECALCIFEROL [Concomitant]
     Active Substance: CHOLECALCIFEROL
     Dosage: 75 ?G, DAILY
     Route: 048
  10. DOCUSATE [Concomitant]
     Active Substance: DOCUSATE
     Dosage: 20 ML (200 MG TOTAL), DAILY. HOLD FOR MORE THAN 2 BM
     Route: 048
  11. FENOFIBRATE [Concomitant]
     Active Substance: FENOFIBRATE
     Dosage: 160 MG, DAILY
     Route: 048
  12. FERROUS SULFATE [Concomitant]
     Active Substance: FERROUS SULFATE
     Dosage: 5 ML (300 MG TOTAL), DAILY
     Route: 048
  13. GABAPENTIN [Concomitant]
     Active Substance: GABAPENTIN
     Dosage: 6 ML (300 MG), 3X/DAY
     Route: 048
  14. LACOSAMIDE [Concomitant]
     Active Substance: LACOSAMIDE
     Dosage: 17 MG, 2X/DAY
     Route: 048
  15. LANSOPRAZOLE [Concomitant]
     Active Substance: LANSOPRAZOLE
     Dosage: 170 MG, 2X/DAY
     Route: 048
  16. LEVOTHYROXINE [Concomitant]
     Active Substance: LEVOTHYROXINE
     Dosage: 50 ?G, EVERY MORNING ON AN EMPTY STOMACH
     Route: 048
  17. LORATADINE [Concomitant]
     Active Substance: LORATADINE
     Dosage: 10 MG, DAILY
     Route: 048
  18. METFORMIN [Concomitant]
     Active Substance: METFORMIN HYDROCHLORIDE
     Dosage: 500 MG, 2X/DAY WITH BREAKFAST AND DINNER
     Route: 048
  19. METOCLOPRAMIDE HYDROCHLORIDE [Concomitant]
     Active Substance: METOCLOPRAMIDE HYDROCHLORIDE
     Dosage: 10 MG, 4X/DAY AS NEEDED
     Route: 048
  20. VITAMINS [Concomitant]
     Active Substance: VITAMINS
     Dosage: 1 TABLETS, DAILY
     Route: 048
  21. SODIUM CHLORIDE [Concomitant]
     Active Substance: SODIUM CHLORIDE
     Dosage: UNK BY NEBULIZATION, 2X/DAY
  22. TOBRAMYCIN [Concomitant]
     Active Substance: TOBRAMYCIN
     Dosage: INHALE 300 MG BY MOUTH VIA INHALER 300 MG DAILY

REACTIONS (12)
  - Septic shock [Recovered/Resolved]
  - Lactic acidosis [Recovered/Resolved]
  - Bradycardia [Recovered/Resolved]
  - Acute respiratory failure [Recovered/Resolved]
  - Urinary tract infection [Recovering/Resolving]
  - Serratia infection [Recovering/Resolving]
  - Klebsiella urinary tract infection [Recovering/Resolving]
  - Proteus infection [Recovering/Resolving]
  - Seizure [Recovered/Resolved]
  - Pulmonary congestion [Recovering/Resolving]
  - Off label use [Not Recovered/Not Resolved]
  - Product dose omission issue [Recovered/Resolved]

NARRATIVE: CASE EVENT DATE: 20230101
